FAERS Safety Report 10072788 (Version 4)
Quarter: 2014Q3

REPORT INFORMATION
  Report Type: Spontaneous
  Country: IT (occurrence: IT)
  Receive Date: 20140411
  Receipt Date: 20140721
  Transmission Date: 20150326
  Serious: Yes (Other)
  Sender: FDA-Public Use
  Company Number: IT-ACTAVIS-2013-23740

PATIENT
  Age: 57 Year
  Sex: Female
  Weight: 50 kg

DRUGS (6)
  1. OXALIPLATIN (UNKNOWN) [Suspect]
     Active Substance: OXALIPLATIN
     Indication: COLON CANCER
     Dosage: 125 MG, CYCLICAL
     Route: 042
     Dates: start: 20131121, end: 20131121
  2. FLUOROURACIL                       /00098802/ [Concomitant]
     Active Substance: FLUOROURACIL
     Dosage: 3600 UNK, UNK
     Route: 042
  3. OXALIPLATIN (UNKNOWN) [Suspect]
     Active Substance: OXALIPLATIN
     Dosage: 90 MG, CYCLICAL
     Route: 042
  4. AVASTIN [Concomitant]
     Active Substance: BEVACIZUMAB
     Indication: COLON CANCER
     Dosage: 250 MG, UNK
     Route: 042
     Dates: start: 20131121, end: 20131121
  5. FLUOROURACIL                       /00098802/ [Concomitant]
     Active Substance: FLUOROURACIL
     Indication: COLON CANCER
     Dosage: 600 MG, UNK
     Route: 042
     Dates: start: 20131121, end: 20131121
  6. LEDERFOLIN [Concomitant]
     Active Substance: LEUCOVORIN CALCIUM
     Indication: PRODUCT USED FOR UNKNOWN INDICATION
     Dosage: 300 MG, UNK
     Route: 042
     Dates: start: 20131121, end: 20131121

REACTIONS (3)
  - Anaemia [Recovering/Resolving]
  - Paraesthesia [Recovering/Resolving]
  - Neutropenia [Recovering/Resolving]

NARRATIVE: CASE EVENT DATE: 20131209
